FAERS Safety Report 14494769 (Version 1)
Quarter: 2018Q1

REPORT INFORMATION
  Report Type: Report from Study
  Country: TW (occurrence: TW)
  Receive Date: 20180206
  Receipt Date: 20180206
  Transmission Date: 20180509
  Serious: Yes (Other)
  Sender: FDA-Public Use
  Company Number: PHHY2018TW018552

PATIENT
  Age: 53 Year
  Sex: Male

DRUGS (13)
  1. TASIGNA [Suspect]
     Active Substance: NILOTINIB
     Indication: CHRONIC MYELOID LEUKAEMIA
     Dosage: 600 MG, UNK
     Route: 048
     Dates: start: 20140305, end: 20140401
  2. APO-TRAMADOL [Concomitant]
     Active Substance: TRAMADOL
     Indication: PROPHYLAXIS
     Dosage: 325 MG, UNK
     Route: 048
     Dates: start: 20151210, end: 20151222
  3. RINDERON V [Concomitant]
     Active Substance: BETAMETHASONE VALERATE
     Indication: PROPHYLAXIS
     Dosage: 1 DF, UNK
     Route: 042
     Dates: start: 20151210, end: 20151211
  4. CEPHRADINE [Concomitant]
     Active Substance: CEPHRADINE
     Dosage: 1 G, UNK
     Route: 042
     Dates: start: 20151217, end: 20151221
  5. GENTAMYCIN SULFATE [Concomitant]
     Active Substance: GENTAMICIN SULFATE
     Indication: INFECTION PROPHYLAXIS
     Dosage: 1 DF, UNK
     Route: 065
     Dates: start: 20151210, end: 20151221
  6. SENNAPUR [Concomitant]
     Indication: PROPHYLAXIS
     Dosage: 12.5 MG, UNK
     Route: 048
     Dates: start: 20151211
  7. DULCOLAX NOS [Concomitant]
     Active Substance: BISACODYL OR DOCUSATE SODIUM
     Indication: PROPHYLAXIS
     Dosage: 5 MG, UNK
     Route: 065
     Dates: start: 20151221, end: 20151221
  8. LACTUL [Concomitant]
     Indication: PROPHYLAXIS
     Dosage: 300 ML, UNK
     Route: 048
     Dates: start: 20151221, end: 20151221
  9. GOWELL [Concomitant]
     Indication: PROPHYLAXIS
     Dosage: 1 DF, UNK
     Route: 048
     Dates: start: 20151210, end: 20151211
  10. TASIGNA [Suspect]
     Active Substance: NILOTINIB
     Dosage: 300 MG, UNK
     Route: 048
     Dates: start: 20140402, end: 20140408
  11. TASIGNA [Suspect]
     Active Substance: NILOTINIB
     Dosage: 600 MG, UNK
     Route: 048
     Dates: start: 20140409
  12. PANTOLOC [Concomitant]
     Active Substance: PANTOPRAZOLE SODIUM
     Indication: PROPHYLAXIS
     Dosage: 40 MG, UNK
     Route: 042
     Dates: start: 20151210, end: 20151211
  13. CEPHRADINE [Concomitant]
     Active Substance: CEPHRADINE
     Indication: INFECTION PROPHYLAXIS
     Dosage: 1 G, UNK
     Route: 042
     Dates: start: 20151210, end: 20151217

REACTIONS (1)
  - Diabetes mellitus [Recovering/Resolving]

NARRATIVE: CASE EVENT DATE: 20141015
